FAERS Safety Report 6164405-3 (Version None)
Quarter: 2009Q2

REPORT INFORMATION
  Report Type: 
  Country: None (occurrence: None)
  Receive Date: 20090422
  Receipt Date: 20090330
  Transmission Date: 20091009
  Serious: Yes (Other)
  Sender: FDA-Public Use
  Company Number: FR-GENENTECH-280875

PATIENT

DRUGS (4)
  1. MABTHERA [Suspect]
     Indication: RENAL TRANSPLANT
     Dosage: 375 MG/M2, 1/WEEK
     Route: 065
  2. MYCOPHENOLATE MOFETIL [Suspect]
     Indication: PROPHYLAXIS AGAINST TRANSPLANT REJECTION
     Route: 065
  3. TACROLIMUS [Suspect]
     Indication: PROPHYLAXIS AGAINST TRANSPLANT REJECTION
     Route: 065
  4. STEROIDS (UNK INGREDIENTS) [Concomitant]
     Indication: DRUG USE FOR UNKNOWN INDICATION

REACTIONS (4)
  - BK VIRUS INFECTION [None]
  - JC VIRUS INFECTION [None]
  - POLYOMAVIRUS-ASSOCIATED NEPHROPATHY [None]
  - TRANSPLANT REJECTION [None]
